FAERS Safety Report 20786628 (Version 1)
Quarter: 2022Q2

REPORT INFORMATION
  Report Type: Spontaneous
  Country: DE (occurrence: DE)
  Receive Date: 20220505
  Receipt Date: 20220505
  Transmission Date: 20220721
  Serious: Yes (Other)
  Sender: FDA-Public Use
  Company Number: DE-CADRBFARM-2022291009

PATIENT
  Age: 32 Year
  Sex: Female
  Weight: 61 kg

DRUGS (1)
  1. CIPROFLOXACIN [Suspect]
     Active Substance: CIPROFLOXACIN
     Indication: Urinary tract infection
     Dosage: 1X EVERY DAY
     Route: 048
     Dates: start: 20170901, end: 20170910

REACTIONS (16)
  - Renal haemorrhage [Recovering/Resolving]
  - Wheelchair user [Recovered/Resolved]
  - Genital burning sensation [Recovering/Resolving]
  - Multiple allergies [Not Recovered/Not Resolved]
  - Genital erythema [Not Recovered/Not Resolved]
  - Urinary bladder haemorrhage [Recovering/Resolving]
  - Rash [Unknown]
  - Urethral haemorrhage [Recovering/Resolving]
  - Weight bearing difficulty [Recovered/Resolved]
  - Pain [Recovering/Resolving]
  - Connective tissue disorder [Recovering/Resolving]
  - Intestinal obstruction [Unknown]
  - Erythema [Not Recovered/Not Resolved]
  - Dysphagia [Unknown]
  - Visual impairment [Unknown]
  - Mobility decreased [Recovering/Resolving]

NARRATIVE: CASE EVENT DATE: 20170904
